FAERS Safety Report 20572263 (Version 2)
Quarter: 2022Q1

REPORT INFORMATION
  Report Type: Spontaneous
  Country: US (occurrence: US)
  Receive Date: 20220309
  Receipt Date: 20220309
  Transmission Date: 20220423
  Serious: Yes (Other)
  Sender: FDA-Public Use
  Company Number: US-CELGENE-USA-20220301881

PATIENT
  Age: 74 Year
  Sex: Male

DRUGS (1)
  1. INREBIC [Suspect]
     Active Substance: FEDRATINIB HYDROCHLORIDE
     Indication: Myeloproliferative neoplasm
     Dosage: 400 MILLIGRAM
     Route: 048
     Dates: start: 202202

REACTIONS (8)
  - Bladder disorder [Unknown]
  - Myalgia [Unknown]
  - Gastrointestinal motility disorder [Unknown]
  - Dizziness postural [Unknown]
  - Haemoglobin decreased [Unknown]
  - Bone pain [Unknown]
  - Fatigue [Unknown]
  - Asthenia [Unknown]

NARRATIVE: CASE EVENT DATE: 20220214
